FAERS Safety Report 5082798-5 (Version None)
Quarter: 2006Q3

REPORT INFORMATION
  Report Type: 
  Country: None (occurrence: None)
  Receive Date: 20060814
  Receipt Date: 20060804
  Transmission Date: 20061208
  Serious: Yes (Hospitalization, Other)
  Sender: FDA-Public Use
  Company Number: 2006076960

PATIENT
  Sex: Male

DRUGS (1)
  1. DILANTIN KAPSEAL [Suspect]
     Indication: CONVULSION
     Dosage: 200 MG (100 MG, 2 IN 1 D) ORAL
     Route: 048
     Dates: end: 20060401

REACTIONS (7)
  - CONVULSION [None]
  - DIALYSIS [None]
  - DRUG LEVEL FLUCTUATING [None]
  - HEPATIC FAILURE [None]
  - LETHARGY [None]
  - PYREXIA [None]
  - RENAL FAILURE [None]
